FAERS Safety Report 23078034 (Version 1)
Quarter: 2023Q4

REPORT INFORMATION
  Report Type: Spontaneous
  Country: US (occurrence: US)
  Receive Date: 20231018
  Receipt Date: 20231018
  Transmission Date: 20240110
  Serious: No
  Sender: FDA-Public Use
  Company Number: US-drreddys-SPO/USA/23/0178636

PATIENT
  Age: 34 Year
  Sex: Female

DRUGS (1)
  1. ZENATANE [Suspect]
     Active Substance: ISOTRETINOIN
     Indication: Acne
     Dosage: RMA ISSUE DATE: 31 MAY 2023 08:41:16 AM, 29 JUNE 2023 12:18:28 PM, 27 JULY 2023 10:23:31 AM, 24 AUGU

REACTIONS (1)
  - Photophobia [Unknown]
